FAERS Safety Report 11767065 (Version 2)
Quarter: 2015Q4

REPORT INFORMATION
  Report Type: Report from Study
  Country: RO (occurrence: RO)
  Receive Date: 20151123
  Receipt Date: 20151207
  Transmission Date: 20160304
  Serious: Yes (Hospitalization, Other)
  Sender: FDA-Public Use
  Company Number: RO-ASTELLAS-2015US042556

PATIENT
  Sex: Male

DRUGS (14)
  1. DEXTROSE. [Concomitant]
     Active Substance: DEXTROSE
     Indication: PRODUCT USED FOR UNKNOWN INDICATION
     Dosage: UNK UNK, UNKNOWN FREQ.
     Route: 042
  2. HUMAN ALBUMIN [Concomitant]
     Active Substance: ALBUMIN (HUMAN)
     Indication: PRODUCT USED FOR UNKNOWN INDICATION
     Dosage: UNK UNK, UNKNOWN FREQ.
     Route: 042
  3. LINEZOLID. [Concomitant]
     Active Substance: LINEZOLID
     Indication: ANTIBIOTIC PROPHYLAXIS
     Dosage: UNK UNK, UNKNOWN FREQ.
     Route: 042
     Dates: start: 20151027
  4. CONTROLOC                          /01263201/ [Concomitant]
     Indication: PROPHYLAXIS AGAINST GASTROINTESTINAL ULCER
     Dosage: UNK UNK, UNKNOWN FREQ.
     Route: 042
  5. PROPOFOL. [Concomitant]
     Active Substance: PROPOFOL
     Indication: SEDATION
     Dosage: UNK, UNKNOWN FREQ.
     Route: 042
  6. FENTANYL. [Concomitant]
     Active Substance: FENTANYL
     Indication: SEDATION
     Dosage: UNK UNK, UNKNOWN FREQ.
     Route: 042
  7. MEROPENEM. [Concomitant]
     Active Substance: MEROPENEM
     Indication: ANTIBIOTIC PROPHYLAXIS
     Dosage: UNK UNK, UNKNOWN FREQ.
     Route: 042
     Dates: start: 20151029
  8. MICAFUNGIN [Suspect]
     Active Substance: MICAFUNGIN
     Indication: SYSTEMIC CANDIDA
     Dosage: 100 MG, DAILY
     Route: 042
     Dates: start: 20151105, end: 20151114
  9. COLISTIN [Concomitant]
     Active Substance: COLISTIN
     Indication: BACTERIAL INFECTION
     Dosage: UNK UNK, UNKNOWN FREQ.
     Route: 042
     Dates: start: 20151104
  10. HEPATAMINE                         /03652001/ [Concomitant]
     Indication: HEPATIC CIRRHOSIS
     Dosage: UNK UNK, UNKNOWN FREQ.
     Route: 042
  11. SODIUM CHLORIDE. [Concomitant]
     Active Substance: SODIUM CHLORIDE
     Indication: PRODUCT USED FOR UNKNOWN INDICATION
     Dosage: UNK UNK, UNKNOWN FREQ.
     Route: 042
  12. HEPARIN [Suspect]
     Active Substance: HEPARIN SODIUM
     Indication: HAEMOFILTRATION
     Dosage: 400 U/H, ONCE DAILY
     Route: 042
     Dates: start: 20151106, end: 20151108
  13. HEPARIN [Suspect]
     Active Substance: HEPARIN SODIUM
     Dosage: 300 U/H, ONCE DAILY
     Route: 042
     Dates: start: 20151110, end: 20151112
  14. FLUCONAZOLE. [Concomitant]
     Active Substance: FLUCONAZOLE
     Indication: PRODUCT USED FOR UNKNOWN INDICATION
     Route: 042
     Dates: start: 20151029, end: 20151104

REACTIONS (2)
  - Anaemia [Recovered/Resolved]
  - Subarachnoid haemorrhage [Not Recovered/Not Resolved]

NARRATIVE: CASE EVENT DATE: 20151108
